FAERS Safety Report 26217445 (Version 1)
Quarter: 2025Q4

REPORT INFORMATION
  Report Type: Spontaneous
  Country: CN (occurrence: CN)
  Receive Date: 20251231
  Receipt Date: 20251231
  Transmission Date: 20260117
  Serious: Yes (Other)
  Sender: ALEXION PHARMACEUTICALS
  Company Number: CN-ASTRAZENECA-202512CHN023709CN

PATIENT
  Age: 59 Year
  Sex: Male
  Weight: 72 kg

DRUGS (4)
  1. TAGRISSO [Suspect]
     Active Substance: OSIMERTINIB
     Indication: Neoplasm malignant
     Dosage: 80 MILLIGRAM, QD
     Route: 061
     Dates: start: 20251118, end: 20251206
  2. CARBOPLATIN [Concomitant]
     Active Substance: CARBOPLATIN
     Indication: Neoplasm malignant
     Dosage: 500 MILLIGRAM, QD
     Dates: start: 20251112, end: 20251206
  3. PEMETREXED [Concomitant]
     Active Substance: PEMETREXED
     Indication: Neoplasm malignant
     Dosage: 50 MILLIGRAM, QD
     Dates: start: 20251112, end: 20251206
  4. PEMETREXED [Concomitant]
     Active Substance: PEMETREXED
     Dosage: 10 MILLIGRAM, QD
     Dates: start: 20251112, end: 20251206

REACTIONS (1)
  - Xerophthalmia [Recovering/Resolving]

NARRATIVE: CASE EVENT DATE: 20251205
